FAERS Safety Report 6985999-1 (Version None)
Quarter: 2010Q3

REPORT INFORMATION
  Report Type: 
  Country: None (occurrence: None)
  Receive Date: 20100915
  Receipt Date: 20100409
  Transmission Date: 20110219
  Serious: No
  Sender: FDA-Public Use
  Company Number: US-ALLERGAN-1004665US

PATIENT
  Age: 70 Year
  Sex: Female

DRUGS (5)
  1. BLEPHAMIDE [Suspect]
     Indication: PRODUCT USED FOR UNKNOWN INDICATION
     Dosage: UNK
     Dates: start: 20100311
  2. SYNTHROID [Concomitant]
     Indication: HYPOTHYROIDISM
  3. OESTROGEN [Concomitant]
  4. CALCIUM [Concomitant]
  5. VITAMIN D [Concomitant]

REACTIONS (1)
  - SKIN DISCOLOURATION [None]
